FAERS Safety Report 7496595-4 (Version None)
Quarter: 2011Q2

REPORT INFORMATION
  Report Type: 
  Country: None (occurrence: None)
  Receive Date: 20110520
  Receipt Date: 20110520
  Transmission Date: 20111010
  Serious: Yes (Other)
  Sender: FDA-Public Use
  Company Number: None

PATIENT
  Sex: Male

DRUGS (1)
  1. LENALIDOMIDE [Suspect]
     Indication: MULTIPLE MYELOMA
     Dosage: 25 MG QD X 14 DAYS PO
     Route: 048
     Dates: start: 20070504, end: 20080525

REACTIONS (5)
  - LUNG ADENOCARCINOMA STAGE III [None]
  - PNEUMONIA HERPES VIRAL [None]
  - ASPIRATION BRONCHIAL [None]
  - PNEUMONIA [None]
  - LUNG INFECTION [None]
